FAERS Safety Report 13229141 (Version 1)
Quarter: 2017Q1

REPORT INFORMATION
  Report Type: Spontaneous
  Country: TH (occurrence: TH)
  Receive Date: 20170214
  Receipt Date: 20170214
  Transmission Date: 20170428
  Serious: Yes (Other)
  Sender: FDA-Public Use
  Company Number: TH-ENDO PHARMACEUTICALS INC-2017-000665

PATIENT
  Age: 59 Year
  Sex: Female

DRUGS (1)
  1. DONEPEZIL HYDROCHLORIDE. [Suspect]
     Active Substance: DONEPEZIL HYDROCHLORIDE
     Indication: DEMENTIA ALZHEIMER^S TYPE
     Dosage: 23 MG, DAILY
     Route: 065

REACTIONS (1)
  - Parkinsonism [Recovered/Resolved]
